FAERS Safety Report 8090922-5 (Version None)
Quarter: 2012Q1

REPORT INFORMATION
  Report Type: 
  Country: None (occurrence: None)
  Receive Date: 20120128
  Receipt Date: 20110819
  Transmission Date: 20120608
  Serious: No
  Sender: FDA-Public Use
  Company Number: US-ABBOTT-11P-163-0848115-00

PATIENT
  Sex: Female
  Weight: 35.412 kg

DRUGS (2)
  1. HUMIRA [Suspect]
     Indication: JUVENILE ARTHRITIS
     Dates: start: 20110601
  2. AZITHROMYCIN [Concomitant]
     Indication: SELECTIVE IGA IMMUNODEFICIENCY

REACTIONS (6)
  - MOBILITY DECREASED [None]
  - DYSSTASIA [None]
  - FIBROMYALGIA [None]
  - ARTHRALGIA [None]
  - PAIN IN EXTREMITY [None]
  - PAIN [None]
